FAERS Safety Report 5774557-2 (Version None)
Quarter: 2008Q2

REPORT INFORMATION
  Report Type: 
  Country: None (occurrence: None)
  Receive Date: 20080612
  Receipt Date: 20080528
  Transmission Date: 20081010
  Serious: Yes (Hospitalization)
  Sender: FDA-Public Use
  Company Number: 2008BI012084

PATIENT
  Age: 67 Year
  Sex: Female
  Weight: 86.8638 kg

DRUGS (1)
  1. AVONEX [Suspect]
     Indication: MULTIPLE SCLEROSIS
     Dosage: 30 UG; QW; IM
     Route: 030
     Dates: start: 19960501

REACTIONS (6)
  - CELLULITIS STAPHYLOCOCCAL [None]
  - MEMORY IMPAIRMENT [None]
  - MUSCULAR WEAKNESS [None]
  - POOR PERIPHERAL CIRCULATION [None]
  - STAPHYLOCOCCAL INFECTION [None]
  - TOE AMPUTATION [None]
